FAERS Safety Report 7650043-X (Version None)
Quarter: 2011Q3

REPORT INFORMATION
  Report Type: 
  Country: None (occurrence: None)
  Receive Date: 20110802
  Receipt Date: 20110802
  Transmission Date: 20111222
  Serious: Yes (Other)
  Sender: FDA-Public Use
  Company Number: None

PATIENT
  Age: 29 Year
  Sex: Female
  Weight: 70.306 kg

DRUGS (1)
  1. SERTRALINE HYDROCHLORIDE [Suspect]
     Indication: DEPRESSION
     Dates: start: 20000315, end: 20110729

REACTIONS (4)
  - HOMICIDAL IDEATION [None]
  - ANGER [None]
  - IRRITABILITY [None]
  - EMOTIONAL DISORDER [None]
